FAERS Safety Report 5509202-4 (Version None)
Quarter: 2007Q4

REPORT INFORMATION
  Report Type: 
  Country: None (occurrence: None)
  Receive Date: 20071031
  Receipt Date: 20070618
  Transmission Date: 20080405
  Serious: No
  Sender: FDA-Public Use
  Company Number: 2007PV033044

PATIENT
  Age: 70 Year
  Sex: Female

DRUGS (1)
  1. SYMLIN [Suspect]
     Indication: DIABETES MELLITUS
     Dosage: 120 MCG; SC
     Route: 058
     Dates: start: 20070101

REACTIONS (1)
  - BLOOD GLUCOSE INCREASED [None]
